FAERS Safety Report 6661031-4 (Version None)
Quarter: 2010Q1

REPORT INFORMATION
  Report Type: 
  Country: None (occurrence: None)
  Receive Date: 20100331
  Receipt Date: 20100323
  Transmission Date: 20100710
  Serious: Yes (Other)
  Sender: FDA-Public Use
  Company Number: DE-JNJCH-2010007174

PATIENT
  Sex: Male

DRUGS (2)
  1. ROGAINE [Suspect]
     Indication: DRUG USE FOR UNKNOWN INDICATION
     Dosage: TEXT:UNKNOWN
     Route: 061
     Dates: start: 20091101, end: 20100319
  2. ANTI-ACNE PREPARATIONS [Concomitant]
     Indication: ACNE
     Dosage: TEXT:UNKNOWN
     Route: 048
     Dates: start: 20091101, end: 20100201

REACTIONS (1)
  - BLOOD CREATINE PHOSPHOKINASE INCREASED [None]
